FAERS Safety Report 6294114-1 (Version None)
Quarter: 2009Q3

REPORT INFORMATION
  Report Type: 
  Country: None (occurrence: None)
  Receive Date: 20090803
  Receipt Date: 20081212
  Transmission Date: 20100115
  Serious: No
  Sender: FDA-Public Use
  Company Number: A0758049A

PATIENT
  Age: 40 Year
  Sex: Female

DRUGS (1)
  1. NICORETTE WHITE ICE OTC 4MG [Suspect]
     Dates: start: 20081123, end: 20081123

REACTIONS (4)
  - ASTHENIA [None]
  - DIZZINESS [None]
  - MALAISE [None]
  - NAUSEA [None]
